FAERS Safety Report 8607075-4 (Version None)
Quarter: 2012Q3

REPORT INFORMATION
  Report Type: 
  Country: None (occurrence: None)
  Receive Date: 20120821
  Receipt Date: 20120809
  Transmission Date: 20120928
  Serious: Yes (Hospitalization, Other)
  Sender: FDA-Public Use
  Company Number: JP-BRISTOL-MYERS SQUIBB COMPANY-16825184

PATIENT
  Age: 71 Year
  Sex: Male

DRUGS (9)
  1. METFORMIN HCL [Suspect]
     Indication: DIABETES MELLITUS
     Route: 048
     Dates: start: 20120601, end: 20120718
  2. CALBLOCK [Concomitant]
     Indication: HYPERTENSION
     Route: 048
  3. SINEMET [Concomitant]
     Indication: PARKINSON'S DISEASE
     Dosage: DOPACOL
     Route: 048
     Dates: start: 20090601
  4. PLAVIX [Concomitant]
     Indication: CEREBRAL INFARCTION
     Route: 048
     Dates: start: 20110722
  5. REQUIP [Concomitant]
     Indication: PARKINSON'S DISEASE
     Route: 048
     Dates: start: 20110501
  6. PLAVIX [Concomitant]
     Route: 048
  7. GASTROM [Concomitant]
     Route: 048
     Dates: start: 20110722
  8. ZONISAMIDE [Concomitant]
     Indication: PARKINSON'S DISEASE
     Dosage: TRERIEF
     Route: 048
     Dates: start: 20110901
  9. CRESTOR [Concomitant]
     Indication: DYSLIPIDAEMIA
     Route: 048
     Dates: start: 20110726

REACTIONS (3)
  - BLOOD GLUCOSE ABNORMAL [None]
  - PANCREATIC NEOPLASM [None]
  - DYSPHAGIA [None]
